FAERS Safety Report 5755673-8 (Version None)
Quarter: 2008Q2

REPORT INFORMATION
  Report Type: 
  Country: None (occurrence: None)
  Receive Date: 20080530
  Receipt Date: 20080530
  Transmission Date: 20081010
  Serious: Yes (Hospitalization)
  Sender: FDA-Public Use
  Company Number: None

PATIENT
  Age: 68 Year
  Sex: Male
  Weight: 88.4514 kg

DRUGS (4)
  1. ABRAXANE [Suspect]
     Indication: NON-SMALL CELL LUNG CANCER
     Dosage: 171MG IV DAYS 1, 8, 15
     Route: 042
     Dates: start: 20080401
  2. ABRAXANE [Suspect]
     Indication: NON-SMALL CELL LUNG CANCER
     Dosage: 171MG IV DAYS 1, 8, 15
     Route: 042
     Dates: start: 20080408
  3. ABRAXANE [Suspect]
     Indication: NON-SMALL CELL LUNG CANCER
     Dosage: 171MG IV DAYS 1, 8, 15
     Route: 042
     Dates: start: 20080415
  4. CARBOPLATIN [Suspect]
     Dosage: 595MG IV DAYS 1
     Route: 042
     Dates: start: 20080401

REACTIONS (4)
  - APHASIA [None]
  - BRAIN NEOPLASM [None]
  - DYSARTHRIA [None]
  - METASTASES TO CENTRAL NERVOUS SYSTEM [None]
